FAERS Safety Report 24906864 (Version 1)
Quarter: 2025Q1

REPORT INFORMATION
  Report Type: Spontaneous
  Country: US (occurrence: US)
  Receive Date: 20250130
  Receipt Date: 20250130
  Transmission Date: 20250409
  Serious: Yes (Hospitalization)
  Sender: SANOFI AVENTIS
  Company Number: US-SA-2025SA027477

PATIENT
  Age: 28 Year
  Sex: Female

DRUGS (8)
  1. REZUROCK [Suspect]
     Active Substance: BELUMOSUDIL
     Dosage: 200 MG, QD
     Route: 048
  2. BACTRIM DS [Concomitant]
     Active Substance: SULFAMETHOXAZOLE\TRIMETHOPRIM
  3. PREDNISONE [Concomitant]
     Active Substance: PREDNISONE
  4. SIROLIMUS [Concomitant]
     Active Substance: SIROLIMUS
  5. TYLENOL [Concomitant]
     Active Substance: ACETAMINOPHEN
  6. URSODIOL [Concomitant]
     Active Substance: URSODIOL
  7. VITAMIN D2 [Concomitant]
     Active Substance: ERGOCALCIFEROL
  8. VALGANCICLOVIR [Concomitant]
     Active Substance: VALGANCICLOVIR

REACTIONS (2)
  - Influenza [Unknown]
  - Diarrhoea [Unknown]
